FAERS Safety Report 22635112 (Version 1)
Quarter: 2023Q2

REPORT INFORMATION
  Report Type: Report from Study
  Country: IT (occurrence: IT)
  Receive Date: 20230623
  Receipt Date: 20230623
  Transmission Date: 20230721
  Serious: Yes (Other)
  Sender: FDA-Public Use
  Company Number: IT-SUN PHARMACEUTICAL INDUSTRIES LTD-2023RR-395289

PATIENT
  Age: 44 Year
  Sex: Female

DRUGS (3)
  1. MORPHINE [Suspect]
     Active Substance: MORPHINE
     Indication: Pain
     Dosage: 30 MILLIGRAM, BID
     Route: 065
  2. MORPHINE [Suspect]
     Active Substance: MORPHINE
     Dosage: SHORT-ACTING AS NEEDED
     Route: 065
  3. ACETAMINOPHEN [Suspect]
     Active Substance: ACETAMINOPHEN
     Indication: Pain
     Dosage: 2 GRAM, DAILY
     Route: 065

REACTIONS (1)
  - Disease progression [Unknown]
